FAERS Safety Report 4294750-8 (Version None)
Quarter: 2004Q1

REPORT INFORMATION
  Report Type: 
  Country: None (occurrence: None)
  Receive Date: 20040211
  Receipt Date: 20040127
  Transmission Date: 20041129
  Serious: Yes (Hospitalization)
  Sender: FDA-Public Use
  Company Number: JP_030901837

PATIENT
  Age: 75 Year
  Sex: Female
  Weight: 46 kg

DRUGS (3)
  1. GEMZAR [Suspect]
     Indication: LUNG ADENOCARCINOMA
     Dosage: 1000 MG/OTHER
     Dates: start: 20030814
  2. NAVELBINE [Concomitant]
  3. NASEA (RAMOSETRON HYDROCHLORIDE) [Concomitant]

REACTIONS (9)
  - ABDOMINAL DISCOMFORT [None]
  - BRONCHITIS [None]
  - CONSTIPATION [None]
  - NEUROGENIC BLADDER [None]
  - NEUTROPHIL COUNT DECREASED [None]
  - OXYGEN SATURATION DECREASED [None]
  - URINARY RETENTION [None]
  - URINARY TRACT OBSTRUCTION [None]
  - WHITE BLOOD CELL COUNT DECREASED [None]
